FAERS Safety Report 14515328 (Version 2)
Quarter: 2018Q2

REPORT INFORMATION
  Report Type: Spontaneous
  Country: JP (occurrence: JP)
  Receive Date: 20180210
  Receipt Date: 20180425
  Transmission Date: 20180711
  Serious: Yes (Death)
  Sender: FDA-Public Use
  Company Number: JP-MALLINCKRODT-T201800501

PATIENT
  Age: 38 Year
  Sex: Female
  Weight: 45 kg

DRUGS (13)
  1. METHADONE [Suspect]
     Active Substance: METHADONE HYDROCHLORIDE
     Indication: CANCER PAIN
     Dosage: 30 MG (ONE TIME DOSE 10 MG)
     Route: 048
     Dates: start: 20151009, end: 20151015
  2. LOXOPROFEN [Concomitant]
     Active Substance: LOXOPROFEN
     Indication: ANALGESIC THERAPY
     Dosage: 180 MG
     Route: 048
     Dates: start: 20151105, end: 20151107
  3. METHADONE [Suspect]
     Active Substance: METHADONE HYDROCHLORIDE
     Dosage: 45 MG (ONE TIME DOSE 15 MG)
     Route: 048
     Dates: start: 20151016, end: 20151022
  4. NEUROTROPIN [Concomitant]
     Active Substance: NEUROTROPIN
     Indication: NERVE BLOCK
     Dosage: 1 DF
     Route: 051
     Dates: start: 20151029, end: 20151110
  5. CYMBALTA [Concomitant]
     Active Substance: DULOXETINE HYDROCHLORIDE
     Indication: ANALGESIC THERAPY
     Dosage: 20 MG
     Route: 048
     Dates: start: 20151024, end: 20151123
  6. METHADONE [Suspect]
     Active Substance: METHADONE HYDROCHLORIDE
     Dosage: 30 MG (ONE TIME DOSE 10 MG)
     Route: 048
     Dates: start: 20151125, end: 20151127
  7. ROPION [Concomitant]
     Active Substance: FLURBIPROFEN AXETIL
     Indication: ANALGESIC THERAPY
     Dosage: 150 MG
     Route: 048
     Dates: start: 20151019, end: 20151110
  8. RINDERON V [Concomitant]
     Active Substance: BETAMETHASONE VALERATE
     Indication: NERVE BLOCK
     Dosage: 2 MG
     Route: 051
     Dates: start: 20151030, end: 20151030
  9. LIORESAL [Concomitant]
     Active Substance: BACLOFEN
     Indication: ANALGESIC THERAPY
     Dosage: 15 MG
     Route: 048
     Dates: start: 20151101, end: 20151123
  10. METHADONE [Suspect]
     Active Substance: METHADONE HYDROCHLORIDE
     Dosage: 60 MG (ONE TIME DOSE 20 MG)
     Route: 048
     Dates: start: 20151023, end: 20151124
  11. POPSCAINE [Concomitant]
     Active Substance: LEVOBUPIVACAINE HYDROCHLORIDE
     Indication: NERVE BLOCK
     Dosage: 9 ML
     Route: 051
     Dates: start: 20151029, end: 20151110
  12. CARBOCAINE [Concomitant]
     Active Substance: MEPIVACAINE HYDROCHLORIDE
     Indication: NERVE BLOCK
     Dosage: 5 ML
     Route: 051
     Dates: start: 20151030, end: 20151030
  13. OXINORM [Concomitant]
     Indication: ANALGESIC THERAPY
     Dosage: 20-40 MG P.R.N.
     Route: 048
     Dates: start: 20151007

REACTIONS (6)
  - Constipation [Recovering/Resolving]
  - Nausea [Recovering/Resolving]
  - Depressed mood [Not Recovered/Not Resolved]
  - Decreased appetite [Not Recovered/Not Resolved]
  - Malaise [Not Recovered/Not Resolved]
  - Colon cancer [Fatal]

NARRATIVE: CASE EVENT DATE: 20151010
